FAERS Safety Report 11976064 (Version 1)
Quarter: 2016Q1

REPORT INFORMATION
  Report Type: Spontaneous
  Country: IE (occurrence: IE)
  Receive Date: 20160129
  Receipt Date: 20160129
  Transmission Date: 20160526
  Serious: Yes (Other)
  Sender: FDA-Public Use
  Company Number: IE-SUN PHARMACEUTICAL INDUSTRIES LTD-2016R1-110545

PATIENT
  Age: 28 Year
  Sex: Female

DRUGS (1)
  1. OCTREOTIDE. [Suspect]
     Active Substance: OCTREOTIDE
     Indication: ENDOCRINE DISORDER
     Dosage: UNK
     Route: 058

REACTIONS (1)
  - Blood glucose decreased [Unknown]
